FAERS Safety Report 12446540 (Version 1)
Quarter: 2016Q2

REPORT INFORMATION
  Report Type: Report from Study
  Country: US (occurrence: US)
  Receive Date: 20160608
  Receipt Date: 20160608
  Transmission Date: 20160815
  Serious: Yes (Other)
  Sender: FDA-Public Use
  Company Number: US-GILEAD-2016-0217406

PATIENT
  Age: 46 Year
  Sex: Female

DRUGS (10)
  1. ASPIRIN                            /00002701/ [Concomitant]
     Active Substance: ASPIRIN
  2. NEURONTIN [Concomitant]
     Active Substance: GABAPENTIN
  3. AMBRISENTAN [Suspect]
     Active Substance: AMBRISENTAN
     Indication: PULMONARY ARTERIAL HYPERTENSION
     Dosage: 10 MG, QD
     Route: 065
     Dates: start: 20140625
  4. CARVEDILOL. [Concomitant]
     Active Substance: CARVEDILOL
  5. PREDNISONE. [Concomitant]
     Active Substance: PREDNISONE
  6. LASIX [Concomitant]
     Active Substance: FUROSEMIDE
  7. IRON [Concomitant]
     Active Substance: IRON
  8. PLAQUENIL                          /00072602/ [Concomitant]
     Active Substance: HYDROXYCHLOROQUINE DIPHOSPHATE
  9. POTASSIUM [Concomitant]
     Active Substance: POTASSIUM
  10. ADCIRCA [Concomitant]
     Active Substance: TADALAFIL

REACTIONS (2)
  - Systemic lupus erythematosus [Unknown]
  - Drug dose omission [Unknown]
